FAERS Safety Report 4573873-X (Version None)
Quarter: 2005Q1

REPORT INFORMATION
  Report Type: 
  Country: None (occurrence: None)
  Receive Date: 20050203
  Receipt Date: 20050126
  Transmission Date: 20050727
  Serious: Yes (Hospitalization)
  Sender: FDA-Public Use
  Company Number: 2005UW01368

PATIENT
  Age: 63 Year
  Sex: Male
  Weight: 113.39 kg

DRUGS (2)
  1. NEXIUM [Suspect]
     Indication: GASTROOESOPHAGEAL REFLUX DISEASE
     Dosage: TOOK 2 PILLS ONLY
  2. INDERAL [Concomitant]

REACTIONS (1)
  - MYOCARDIAL INFARCTION [None]
